FAERS Safety Report 9442939 (Version 3)
Quarter: 2013Q3

REPORT INFORMATION
  Report Type: Spontaneous
  Country: US (occurrence: US)
  Receive Date: 20130806
  Receipt Date: 20130812
  Transmission Date: 20140515
  Serious: Yes (Other)
  Sender: FDA-Public Use
  Company Number: US-RB-056926-13

PATIENT
  Age: 79 Year
  Sex: Female

DRUGS (1)
  1. MUCINEX [Suspect]
     Indication: BRONCHITIS
     Dosage: LAST USED THE PRODUCT ON 23-JUL-2013
     Route: 048
     Dates: start: 20130701

REACTIONS (4)
  - Fluid retention [Recovered/Resolved]
  - Blood pressure increased [Recovered/Resolved]
  - Incorrect drug administration duration [Recovered/Resolved]
  - Off label use [Recovered/Resolved]
